FAERS Safety Report 9950615 (Version 2)
Quarter: 2014Q1

REPORT INFORMATION
  Report Type: Report from Study
  Country: US (occurrence: US)
  Receive Date: 20140304
  Receipt Date: 20140304
  Transmission Date: 20141002
  Serious: No
  Sender: FDA-Public Use
  Company Number: US-ABBVIE-13P-163-1055418-00

PATIENT
  Age: 69 Year
  Sex: Female

DRUGS (10)
  1. HUMIRA [Suspect]
     Indication: RHEUMATOID ARTHRITIS
     Dates: start: 20130104
  2. FUROSEMIDE [Concomitant]
     Indication: HYPERTENSION
  3. FUROSEMIDE [Concomitant]
     Indication: SWELLING
  4. FOLIC ACID [Concomitant]
     Indication: LIVER DISORDER
  5. METHOTREXATE [Concomitant]
     Indication: RHEUMATOID ARTHRITIS
  6. TRAMADOL [Concomitant]
     Indication: PAIN
  7. ATENOLOL [Concomitant]
     Indication: HYPERTENSION
  8. OMEPRAZOLE [Concomitant]
     Indication: GASTROOESOPHAGEAL REFLUX DISEASE
  9. BABY ASPIRIN [Concomitant]
     Indication: PROPHYLAXIS
  10. KLOR-CON [Concomitant]
     Indication: MINERAL SUPPLEMENTATION

REACTIONS (2)
  - Injection site bruising [Recovering/Resolving]
  - Drug ineffective [Unknown]
